FAERS Safety Report 6195852-1 (Version None)
Quarter: 2009Q2

REPORT INFORMATION
  Report Type: 
  Country: None (occurrence: None)
  Receive Date: 20090515
  Receipt Date: 20090501
  Transmission Date: 20091009
  Serious: Yes (Hospitalization, Other)
  Sender: FDA-Public Use
  Company Number: 2009PV037819

PATIENT
  Age: 82 Year
  Sex: Male

DRUGS (7)
  1. SYMLIN [Suspect]
     Indication: TYPE 2 DIABETES MELLITUS
     Dosage: 60 MCG;TID;SC;  30 MCG;TID;SC
     Route: 058
     Dates: start: 20071011, end: 20071101
  2. SYMLIN [Suspect]
     Indication: TYPE 2 DIABETES MELLITUS
     Dosage: 60 MCG;TID;SC;  30 MCG;TID;SC
     Route: 058
     Dates: start: 20071101
  3. HUMULIN R [Concomitant]
  4. HUMALOG [Concomitant]
  5. TOPROL-XL [Concomitant]
  6. ZOCOR [Concomitant]
  7. SYNTHROID [Concomitant]

REACTIONS (8)
  - BLINDNESS TRAUMATIC [None]
  - BLINDNESS UNILATERAL [None]
  - EYE INJURY [None]
  - EYEBALL RUPTURE [None]
  - FALL [None]
  - HYPONATRAEMIA [None]
  - RETINAL INJURY [None]
  - SKIN LACERATION [None]
